FAERS Safety Report 23474873 (Version 1)
Quarter: 2024Q1

REPORT INFORMATION
  Report Type: Report from Study
  Country: CO (occurrence: CO)
  Receive Date: 20240204
  Receipt Date: 20240204
  Transmission Date: 20240410
  Serious: Yes (Death, Hospitalization, Other)
  Sender: FDA-Public Use
  Company Number: CO-EXELIXIS-CABO-23065994

PATIENT
  Age: 40 Year
  Sex: Male
  Weight: 50 kg

DRUGS (34)
  1. CABOMETYX [Suspect]
     Active Substance: CABOZANTINIB S-MALATE
     Indication: Renal cell carcinoma
     Dosage: 40 MG, QD
     Route: 048
     Dates: start: 20220505, end: 20230523
  2. CABOMETYX [Suspect]
     Active Substance: CABOZANTINIB S-MALATE
     Dosage: 20 MG, QD
     Route: 048
     Dates: start: 20230524
  3. CABOMETYX [Suspect]
     Active Substance: CABOZANTINIB S-MALATE
     Dosage: 60 MG, QD
     Route: 048
     Dates: start: 20220801
  4. CABOMETYX [Suspect]
     Active Substance: CABOZANTINIB S-MALATE
     Dosage: 60 MG, QD
     Route: 048
     Dates: start: 20220619, end: 20230329
  5. CABOMETYX [Suspect]
     Active Substance: CABOZANTINIB S-MALATE
     Dosage: 40 MG, QD
     Route: 048
     Dates: start: 20230405
  6. CABOMETYX [Suspect]
     Active Substance: CABOZANTINIB S-MALATE
     Dosage: 20 MG, QD
     Route: 048
     Dates: start: 20230520
  7. CABOMETYX [Suspect]
     Active Substance: CABOZANTINIB S-MALATE
     Dosage: 20 MG, QD
     Route: 048
     Dates: start: 20220619, end: 20230819
  8. LEVOTHYROXINE [Concomitant]
     Active Substance: LEVOTHYROXINE\LEVOTHYROXINE SODIUM
     Indication: Hypothyroidism
     Dosage: 150 MCG, EVERY DAY
     Route: 048
     Dates: start: 20230203
  9. LEVOTHYROXINE [Concomitant]
     Active Substance: LEVOTHYROXINE\LEVOTHYROXINE SODIUM
     Dosage: 150 MCG, EVERY DAY
     Route: 048
     Dates: end: 20230819
  10. PANTOPRAZOLE [Concomitant]
     Active Substance: PANTOPRAZOLE
     Indication: Gastrooesophageal reflux disease
     Dosage: 40 MG, EVERY DAY
     Route: 048
     Dates: start: 202206
  11. PANTOPRAZOLE [Concomitant]
     Active Substance: PANTOPRAZOLE
     Indication: Gastrooesophageal reflux disease
     Dosage: 40 MG, DAILY
     Route: 048
     Dates: end: 20230819
  12. FUROSEMIDE [Concomitant]
     Active Substance: FUROSEMIDE
     Indication: Oedema
     Dosage: 40 MG, EVERY 48 HOURS
     Route: 048
     Dates: start: 202206
  13. FUROSEMIDE [Concomitant]
     Active Substance: FUROSEMIDE
     Indication: Polyuria
     Dosage: 40 MG, EVERY 48 HOURS
     Route: 048
     Dates: end: 20230819
  14. SPIRONOLACTONE [Concomitant]
     Active Substance: SPIRONOLACTONE
     Indication: Oedema
     Dosage: 25 MG, EVERY 48 HOURS
     Route: 048
     Dates: start: 202206
  15. SPIRONOLACTONE [Concomitant]
     Active Substance: SPIRONOLACTONE
     Indication: Polyuria
     Dosage: 25 MG, EVERY 48 HOURS
     Route: 048
     Dates: end: 20230819
  16. ACETAMINOPHEN [Concomitant]
     Active Substance: ACETAMINOPHEN
     Indication: Pain management
     Dosage: 1 GRAM, BID (EVERY 12 HOURS)
     Route: 048
     Dates: start: 202206
  17. ACETAMINOPHEN [Concomitant]
     Active Substance: ACETAMINOPHEN
     Dosage: 1 GRAM, EVERY 12 HOURS
     Route: 048
     Dates: start: 202206
  18. ACETAMINOPHEN [Concomitant]
     Active Substance: ACETAMINOPHEN
     Dosage: 1 GM, EVERY 12 HOURS
     Route: 048
     Dates: end: 20230819
  19. PREGABALIN [Concomitant]
     Active Substance: PREGABALIN
     Indication: Pain management
     Dosage: 50 MG, EVERY 24 HOURS
     Route: 048
     Dates: end: 20230819
  20. PREGABALIN [Concomitant]
     Active Substance: PREGABALIN
     Dosage: 75 MG, QD
     Route: 048
     Dates: start: 202206
  21. PREGABALIN [Concomitant]
     Active Substance: PREGABALIN
     Dosage: 50 MG, EVERY 24 HOURS
     Route: 048
  22. PREGABALIN [Concomitant]
     Active Substance: PREGABALIN
     Dosage: 75 MG/DAY
     Route: 048
     Dates: start: 202206
  23. MORPHINE [Concomitant]
     Active Substance: MORPHINE
     Indication: Pain management
     Dosage: 3 DROPS, EVERY 6 HOURS
     Route: 048
     Dates: start: 202206
  24. MORPHINE [Concomitant]
     Active Substance: MORPHINE
     Dosage: 3 DROPS, EVERY 6 HOURS
     Route: 048
     Dates: end: 20230819
  25. VITAMIN D [Concomitant]
     Active Substance: VITAMIN D NOS
     Indication: Vitamin D deficiency
     Dosage: 200 (IU] (INTERNATIONAL UNIT), EVERY 8 HOURS
     Route: 048
  26. VITAMIN D [Concomitant]
     Active Substance: VITAMIN D NOS
     Dosage: 200 IU, EVERY 8 HOURS
     Route: 048
  27. VITAMIN D [Concomitant]
     Active Substance: VITAMIN D NOS
     Dosage: 200 IU, EVERY 8 HOURS
     Route: 048
     Dates: end: 20230819
  28. CALCITRIOL [Concomitant]
     Active Substance: CALCITRIOL
     Indication: Vitamin D deficiency
     Dosage: 0.25 MG, EVERY 8 HOURS
     Route: 048
     Dates: start: 202206
  29. CALCITRIOL [Concomitant]
     Active Substance: CALCITRIOL
     Indication: Calcium deficiency
     Dosage: 0.25 MCG, EVERY 8 HOURS
     Route: 048
     Dates: end: 20230819
  30. CALCITRIOL [Concomitant]
     Active Substance: CALCITRIOL
     Indication: Vitamin D deficiency
  31. CALCIUM CITRATE + D3 [Concomitant]
     Indication: Calcium deficiency
     Dosage: 1500MG200UI/EVERY 8 HOURS
     Route: 048
     Dates: start: 202206
  32. OXYGEN [Concomitant]
     Active Substance: OXYGEN
     Dosage: 2 L
  33. CALCIUM CITRATE+VITAMIN D3 [Concomitant]
     Indication: Calcium deficiency
     Dosage: 1500MG200UI/EVERY 8 HOURS
     Route: 048
     Dates: start: 202206
  34. CALCIUM CITRATE+VITAMIN D3 [Concomitant]
     Dosage: 315 MG, EVERY 8 HOURS
     Route: 048
     Dates: end: 20230819

REACTIONS (12)
  - Fatigue [Not Recovered/Not Resolved]
  - Feeling abnormal [Not Recovered/Not Resolved]
  - Gait disturbance [Not Recovered/Not Resolved]
  - Pulmonary oedema [Not Recovered/Not Resolved]
  - Death [Fatal]
  - Aspiration pleural cavity [Not Recovered/Not Resolved]
  - Oedema peripheral [Recovered/Resolved]
  - Decreased appetite [Not Recovered/Not Resolved]
  - Dizziness [Not Recovered/Not Resolved]
  - Weight decreased [Not Recovered/Not Resolved]
  - Influenza [Not Recovered/Not Resolved]
  - Device occlusion [Unknown]

NARRATIVE: CASE EVENT DATE: 20230301
